FAERS Safety Report 5268970-X (Version None)
Quarter: 2007Q1

REPORT INFORMATION
  Report Type: 
  Country: None (occurrence: None)
  Receive Date: 20070313
  Receipt Date: 20070228
  Transmission Date: 20070707
  Serious: Yes (Other)
  Sender: FDA-Public Use
  Company Number: GXKR2007GB02128

PATIENT
  Age: 40 Year
  Sex: Male

DRUGS (5)
  1. CO-AMOXICLAV (NGX) (AMOXICILLIN, CLAVULANTE) [Suspect]
     Indication: PNEUMONIA
     Dosage: SEE IMAGE
     Route: 042
     Dates: start: 20070129, end: 20070131
  2. CO-AMOXICLAV (NGX) (AMOXICILLIN, CLAVULANTE) [Suspect]
     Indication: PNEUMONIA
     Dosage: SEE IMAGE
     Route: 042
     Dates: start: 20070131, end: 20070202
  3. AMLODIPINE [Concomitant]
  4. BENDROFLUMETHIAZIDE (BENDROFLUMETHIAZIDE) [Concomitant]
  5. PERINDOPRIL ERBUMINE [Concomitant]

REACTIONS (1)
  - HEPATITIS [None]
